FAERS Safety Report 5841096-X (Version None)
Quarter: 2008Q3

REPORT INFORMATION
  Report Type: 
  Country: None (occurrence: None)
  Receive Date: 20080811
  Receipt Date: 20080811
  Transmission Date: 20090109
  Serious: Yes (Hospitalization)
  Sender: FDA-Public Use
  Company Number: None

PATIENT
  Sex: Female
  Weight: 62.3 kg

DRUGS (1)
  1. BORTEZOMIB [Suspect]
     Indication: HLA MARKER STUDY POSITIVE
     Dosage: 2.3MG ONCE IV
     Route: 042
     Dates: start: 20080805

REACTIONS (1)
  - PYREXIA [None]
